FAERS Safety Report 25542909 (Version 1)
Quarter: 2025Q3

REPORT INFORMATION
  Report Type: Other
  Country: MA (occurrence: MA)
  Receive Date: 20250711
  Receipt Date: 20250711
  Transmission Date: 20251020
  Serious: Yes (Other)
  Sender: ALVOGEN
  Company Number: MA-ALVOGEN-2025098311

PATIENT
  Age: 32 Year
  Sex: Female

DRUGS (1)
  1. DEXAMETHASONE [Suspect]
     Active Substance: DEXAMETHASONE
     Indication: Product used for unknown indication

REACTIONS (2)
  - Osteonecrosis [Recovering/Resolving]
  - Self-medication [Unknown]
